FAERS Safety Report 18886262 (Version 7)
Quarter: 2021Q4

REPORT INFORMATION
  Report Type: Report from Study
  Country: GB (occurrence: GB)
  Receive Date: 20210212
  Receipt Date: 20211221
  Transmission Date: 20220303
  Serious: Yes (Hospitalization)
  Sender: FDA-Public Use
  Company Number: None

PATIENT
  Age: 38 Year
  Sex: Female
  Weight: 68 kg

DRUGS (11)
  1. DOCETAXEL [Suspect]
     Active Substance: DOCETAXEL
     Indication: HER2 positive breast cancer
     Dosage: FORM STRENGTH: 100 MG/M2
     Route: 042
     Dates: start: 20130716
  2. FLUOROURACIL [Suspect]
     Active Substance: FLUOROURACIL
     Indication: HER2 positive breast cancer
     Dosage: LAST DOSE PRIOR TO SAE: 25-JUN-2013
     Route: 042
     Dates: start: 20130514, end: 20130625
  3. EPIRUBICIN HYDROCHLORIDE [Suspect]
     Active Substance: EPIRUBICIN HYDROCHLORIDE
     Indication: HER2 positive breast cancer
     Dosage: LAST DOSE PRIOR TO SAE: 25-JUN-2013
     Route: 042
     Dates: start: 20130514, end: 20130625
  4. CYCLOPHOSPHAMIDE [Suspect]
     Active Substance: CYCLOPHOSPHAMIDE
     Indication: HER2 positive breast cancer
     Dosage: LAST DOSE PRIOR TO SAE: 25-JUN-2013
     Route: 042
     Dates: start: 20130514, end: 20130625
  5. PERTUZUMAB [Suspect]
     Active Substance: PERTUZUMAB
     Indication: Product used for unknown indication
     Dosage: UNK Q3W INFUSION, SOLUTION
     Route: 042
     Dates: start: 20130716
  6. HERCEPTIN [Suspect]
     Active Substance: TRASTUZUMAB
     Indication: HER2 positive breast cancer
     Dosage: FORM STRENGTH: 8 MG/KG
     Route: 042
     Dates: start: 20130716
  7. DEXAMETHASONE [Concomitant]
     Active Substance: DEXAMETHASONE
     Route: 065
     Dates: start: 20130514
  8. PEGFILGRASTIM [Concomitant]
     Active Substance: PEGFILGRASTIM
     Dosage: 6 MG
     Route: 065
     Dates: start: 20130515
  9. ACETAMINOPHEN [Concomitant]
     Active Substance: ACETAMINOPHEN
     Dosage: 4000 MG
     Route: 065
     Dates: start: 20130717
  10. DOMPERIDONE [Concomitant]
     Active Substance: DOMPERIDONE
     Dosage: 80 MG
     Route: 065
     Dates: start: 20130514
  11. ONDANSETRON [Concomitant]
     Active Substance: ONDANSETRON
     Route: 065
     Dates: start: 20130514

REACTIONS (5)
  - Vomiting [Recovered/Resolved]
  - Fatigue [Recovered/Resolved]
  - Myalgia [Unknown]
  - Arthralgia [Unknown]
  - Neutropenia [Recovered/Resolved]

NARRATIVE: CASE EVENT DATE: 20130626
